FAERS Safety Report 4534665-0 (Version None)
Quarter: 2004Q4

REPORT INFORMATION
  Report Type: 
  Country: None (occurrence: None)
  Receive Date: 20041214
  Receipt Date: 20040802
  Transmission Date: 20050328
  Serious: No
  Sender: FDA-Public Use
  Company Number: USA040874162

PATIENT
  Age: 77 Year
  Sex: Male
  Weight: 64 kg

DRUGS (7)
  1. CIALIS [Suspect]
     Indication: ERECTILE DYSFUNCTION
     Dosage: 20 MG AS NEEDED
     Dates: start: 20040730
  2. ALBUTEROL [Concomitant]
  3. ADVAIR DISKUS 100/50 [Concomitant]
  4. DOXEPIN HCL [Concomitant]
  5. HYZAAR [Concomitant]
  6. SINGULAIR (MONTELUKAST) [Concomitant]
  7. LOTION [Concomitant]

REACTIONS (1)
  - DRUG INEFFECTIVE [None]
